FAERS Safety Report 21437268 (Version 1)
Quarter: 2022Q4

REPORT INFORMATION
  Report Type: Spontaneous
  Country: US (occurrence: US)
  Receive Date: 20221010
  Receipt Date: 20221010
  Transmission Date: 20230113
  Serious: Yes (Hospitalization, Other)
  Sender: FDA-Public Use
  Company Number: US-SA-SAC20221006001291

PATIENT
  Age: 70 Year
  Sex: Male

DRUGS (37)
  1. PLAVIX [Suspect]
     Active Substance: CLOPIDOGREL BISULFATE
     Indication: Product used for unknown indication
     Dosage: UNK
     Route: 065
  2. ENZALUTAMIDE [Suspect]
     Active Substance: ENZALUTAMIDE
     Indication: Prostate cancer metastatic
     Dosage: 160 MG, QD
     Route: 048
     Dates: start: 20200210, end: 202004
  3. ENZALUTAMIDE [Suspect]
     Active Substance: ENZALUTAMIDE
     Dosage: 80 MG, QD
     Route: 048
     Dates: start: 20200727, end: 202106
  4. ENZALUTAMIDE [Suspect]
     Active Substance: ENZALUTAMIDE
     Dosage: 80 MG, QD
     Route: 048
     Dates: start: 202106, end: 20211203
  5. DICYCLOMINE [Suspect]
     Active Substance: DICYCLOMINE HYDROCHLORIDE
     Indication: Diverticulum
     Dosage: UNK
     Dates: start: 20210904, end: 20210915
  6. LOSARTAN POTASSIUM [Concomitant]
     Active Substance: LOSARTAN POTASSIUM
     Dosage: UNK
  7. ZOLPIDEM TARTRATE [Concomitant]
     Active Substance: ZOLPIDEM TARTRATE
     Dosage: UNK
  8. PREDNISONE [Concomitant]
     Active Substance: PREDNISONE
     Indication: Systemic lupus erythematosus
     Dosage: UNK
  9. GLIMEPIRIDE [Concomitant]
     Active Substance: GLIMEPIRIDE
     Dosage: UNK
  10. CALCIUM [Concomitant]
     Active Substance: CALCIUM
     Dosage: UNK
  11. VITAMIN D3 [Concomitant]
     Active Substance: CHOLECALCIFEROL
     Dosage: UNK
  12. ASCORBIC ACID [Concomitant]
     Active Substance: ASCORBIC ACID
     Dosage: UNK
  13. ASPIRIN [Concomitant]
     Active Substance: ASPIRIN
     Dosage: UNK
  14. TOCOPHEROL [Concomitant]
     Active Substance: TOCOPHEROL
     Dosage: UNK
  15. DENOSUMAB [Concomitant]
     Active Substance: DENOSUMAB
     Dosage: 81 MG
  16. IRON [Concomitant]
     Active Substance: IRON
     Dosage: UNK
  17. BIOTIN [Concomitant]
     Active Substance: BIOTIN
     Dosage: UNK
  18. CALCIUM CARBONATE [Concomitant]
     Active Substance: CALCIUM CARBONATE
     Dosage: UNK
  19. CHROMIC CHLORIDE [Concomitant]
     Active Substance: CHROMIC CHLORIDE
     Dosage: UNK, QD
  20. CUPRIC OXIDE [Concomitant]
     Active Substance: CUPRIC OXIDE
     Dosage: UNK
  21. ERGOCALCIFEROL [Concomitant]
     Active Substance: ERGOCALCIFEROL
     Dosage: UNK
  22. FOLIC ACID [Concomitant]
     Active Substance: FOLIC ACID
     Dosage: UNK
  23. LYCOPENE [Concomitant]
     Active Substance: LYCOPENE
     Dosage: UNK
  24. MAGNESIUM OXIDE [Concomitant]
     Active Substance: MAGNESIUM OXIDE
     Dosage: UNK
  25. MANGANESE SULFATE [Concomitant]
     Active Substance: MANGANESE SULFATE
     Dosage: UNK
  26. PANTOTHENIC ACID [Concomitant]
     Active Substance: PANTOTHENIC ACID
     Dosage: UNK
  27. PHYTONADIONE [Concomitant]
     Active Substance: PHYTONADIONE
     Dosage: UNK
  28. POTASSIUM CHLORIDE [Concomitant]
     Active Substance: POTASSIUM CHLORIDE
     Dosage: UNK
  29. PYRIDOXINE HYDROCHLORIDE [Concomitant]
     Active Substance: PYRIDOXINE HYDROCHLORIDE
     Dosage: UNK
  30. RETINOL [Concomitant]
     Active Substance: RETINOL
     Dosage: UNK
  31. RIBOFLAVIN [Concomitant]
     Active Substance: RIBOFLAVIN
     Dosage: UNK
  32. THIAMINE MONONITRATE [Concomitant]
     Active Substance: THIAMINE MONONITRATE
     Dosage: UNK
  33. OCUVITE [ASCORBIC ACID;RETINOL;TOCOPHEROL] [Concomitant]
     Dosage: UNK
  34. ZINC OXIDE [Concomitant]
     Active Substance: ZINC OXIDE
     Dosage: UNK
  35. LEUPROLIDE ACETATE [Concomitant]
     Active Substance: LEUPROLIDE ACETATE
     Dosage: UNK
  36. PROLIA [Concomitant]
     Active Substance: DENOSUMAB
     Dosage: UNK
  37. ASPIRIN [Concomitant]
     Active Substance: ASPIRIN
     Dosage: UNK

REACTIONS (7)
  - Biopsy liver [Unknown]
  - Myocardial infarction [Recovering/Resolving]
  - Diverticulum [Unknown]
  - Condition aggravated [Unknown]
  - Feeling abnormal [Recovering/Resolving]
  - Drug interaction [Unknown]
  - Abdominal pain upper [Unknown]

NARRATIVE: CASE EVENT DATE: 20211116
